FAERS Safety Report 4362103-X (Version None)
Quarter: 2004Q2

REPORT INFORMATION
  Report Type: 
  Country: None (occurrence: None)
  Receive Date: 20040521
  Receipt Date: 20040510
  Transmission Date: 20050107
  Serious: Yes (Hospitalization)
  Sender: FDA-Public Use
  Company Number: ES-BRISTOL-MYERS SQUIBB COMPANY-12583324

PATIENT
  Age: 69 Year
  Sex: Male

DRUGS (2)
  1. APROVEL TABS 150 MG [Suspect]
     Indication: ESSENTIAL HYPERTENSION
     Route: 048
     Dates: start: 20011001, end: 20011231
  2. DIUZINE [Suspect]
     Indication: ESSENTIAL HYPERTENSION
     Dosage: TRADE NAME=DIUZINE 5/50 MG 60 TABLETS
     Route: 048
     Dates: start: 20011001, end: 20011231

REACTIONS (2)
  - HYPONATRAEMIA [None]
  - INAPPROPRIATE ANTIDIURETIC HORMONE SECRETION [None]
